FAERS Safety Report 9708454 (Version 1)
Quarter: 2013Q4

REPORT INFORMATION
  Report Type: Report from Study
  Country: US (occurrence: US)
  Receive Date: 20131125
  Receipt Date: 20131125
  Transmission Date: 20140711
  Serious: Yes (Hospitalization)
  Sender: FDA-Public Use
  Company Number: US-SA-2013SA120825

PATIENT
  Age: 63 Year
  Sex: Male

DRUGS (5)
  1. PLAVIX [Suspect]
     Route: 048
     Dates: start: 20091109, end: 20091109
  2. PLAVIX [Suspect]
     Route: 048
     Dates: start: 20091110
  3. BLINDED THERAPY [Suspect]
     Route: 065
  4. ASPIRIN [Suspect]
     Route: 065
     Dates: start: 20091110
  5. DRUG ELUTING STENT [Suspect]
     Route: 065

REACTIONS (1)
  - Peripheral vascular disorder [Recovered/Resolved]
